FAERS Safety Report 5098017-X (Version None)
Quarter: 2006Q3

REPORT INFORMATION
  Report Type: 
  Country: None (occurrence: None)
  Receive Date: 20060906
  Receipt Date: 20060321
  Transmission Date: 20061208
  Serious: No
  Sender: FDA-Public Use
  Company Number: US-GLAXOSMITHKLINE-A0598450A

PATIENT
  Age: 46 Year
  Sex: Female

DRUGS (6)
  1. REQUIP [Suspect]
     Indication: RESTLESS LEGS SYNDROME
     Dosage: .5MG PER DAY
     Route: 048
     Dates: start: 20060317
  2. LEVAQUIN [Concomitant]
  3. SYNTHROID [Concomitant]
  4. PLAQUENIL [Concomitant]
  5. LYRICA [Concomitant]
  6. ESTROGEN + PROGESTERONE [Concomitant]

REACTIONS (2)
  - HEART RATE INCREASED [None]
  - POOR QUALITY SLEEP [None]
